FAERS Safety Report 7364064-8 (Version None)
Quarter: 2011Q1

REPORT INFORMATION
  Report Type: 
  Country: None (occurrence: None)
  Receive Date: 20110321
  Receipt Date: 20110316
  Transmission Date: 20110831
  Serious: Yes (Other)
  Sender: FDA-Public Use
  Company Number: US-PFIZER INC-2011023410

PATIENT
  Sex: Female
  Weight: 77.098 kg

DRUGS (1)
  1. ADVIL LIQUI-GELS [Suspect]
     Indication: NASAL CONGESTION
     Dosage: UNK
     Route: 048
     Dates: start: 20110126, end: 20110126

REACTIONS (4)
  - DYSPNOEA [None]
  - HYPERSENSITIVITY [None]
  - DRUG INEFFECTIVE [None]
  - THROAT TIGHTNESS [None]
